FAERS Safety Report 6285670-8 (Version None)
Quarter: 2009Q3

REPORT INFORMATION
  Report Type: 
  Country: None (occurrence: None)
  Receive Date: 20090724
  Receipt Date: 20090715
  Transmission Date: 20100115
  Serious: Yes (Other)
  Sender: FDA-Public Use
  Company Number: 09-000545

PATIENT
  Age: 19 Year
  Sex: Female
  Weight: 80.7 kg

DRUGS (1)
  1. LOESTRIN 24 FE [Suspect]
     Indication: HAEMORRHAGIC OVARIAN CYST
     Dosage: 20/1000 UG, QD, ORAL

REACTIONS (13)
  - BODY TINEA [None]
  - CYST RUPTURE [None]
  - DRUG EXPOSURE DURING PREGNANCY [None]
  - DRUG INEFFECTIVE [None]
  - HAEMORRHAGIC CYST [None]
  - MALAISE [None]
  - NAUSEA [None]
  - OROPHARYNGEAL PAIN [None]
  - OVARIAN CYST [None]
  - PAIN [None]
  - PELVIC FLUID COLLECTION [None]
  - PREGNANCY ON ORAL CONTRACEPTIVE [None]
  - PYREXIA [None]
